FAERS Safety Report 13715705 (Version 2)
Quarter: 2017Q3

REPORT INFORMATION
  Report Type: Report from Study
  Country: US (occurrence: US)
  Receive Date: 20170705
  Receipt Date: 20170831
  Transmission Date: 20171127
  Serious: Yes (Hospitalization)
  Sender: FDA-Public Use
  Company Number: US-ROCHE-1922354

PATIENT
  Age: 67 Year
  Sex: Female
  Weight: 88.53 kg

DRUGS (25)
  1. LEVOTHYROXINE. [Concomitant]
     Active Substance: LEVOTHYROXINE
     Dosage: ONGOING : YES
     Route: 048
     Dates: start: 1993
  2. PRAVASTATIN. [Concomitant]
     Active Substance: PRAVASTATIN
     Indication: BLOOD CHOLESTEROL
     Dosage: AT NIGHT TIME ;ONGOING: YES
     Route: 048
     Dates: start: 1993
  3. INCRUSE ELLIPTA [Concomitant]
     Active Substance: UMECLIDINIUM BROMIDE
     Indication: IDIOPATHIC PULMONARY FIBROSIS
     Dosage: ONE PUFF A DAY ;ONGOING: YES
     Route: 055
     Dates: start: 201702
  4. FUROSEMIDE. [Concomitant]
     Active Substance: FUROSEMIDE
     Dosage: ONGOING: YES
     Route: 048
     Dates: start: 2010
  5. POTASSIUM CHLORIDE. [Concomitant]
     Active Substance: POTASSIUM CHLORIDE
     Dosage: 10MEQ CR, ONCE A MONTH ;ONGOING: YES
     Route: 048
     Dates: start: 201611
  6. PROPRANOLOL [Concomitant]
     Active Substance: PROPRANOLOL HYDROCHLORIDE
     Dosage: ONGOING : YES
     Route: 048
     Dates: start: 2014
  7. NORCO [Concomitant]
     Active Substance: ACETAMINOPHEN\HYDROCODONE BITARTRATE
     Indication: PAIN
     Dosage: 5/325MG AS NEEDED ;ONGOING: YES
     Route: 048
     Dates: start: 2016
  8. NITROGLYCERIN. [Concomitant]
     Active Substance: NITROGLYCERIN
     Indication: CHEST PAIN
     Dosage: AS REQUIRED; ONGOING : YES
     Route: 060
     Dates: start: 2010
  9. TYLENOL [Concomitant]
     Active Substance: ACETAMINOPHEN
  10. ESBRIET [Suspect]
     Active Substance: PIRFENIDONE
     Indication: IDIOPATHIC PULMONARY FIBROSIS
     Dosage: THREE 267MG CAPSULES THREE TIMES A DAY ;ONGOING: YES
     Route: 048
     Dates: start: 20170316
  11. ADVAIR HFA [Concomitant]
     Active Substance: FLUTICASONE PROPIONATE\SALMETEROL XINAFOATE
     Dosage: 250/50 MCG , TWICE A DAY AS NEEDED ;ONGOING: YES
     Route: 055
     Dates: start: 2007
  12. OXYGEN. [Concomitant]
     Active Substance: OXYGEN
     Indication: IDIOPATHIC PULMONARY FIBROSIS
     Dosage: 3L DAYTIME, 2L NIGHT TIME, 24 HOURS 7 DAYS A WEEK ;ONGOING: YES
     Route: 055
     Dates: start: 2006
  13. TIZANIDINE HCL [Concomitant]
     Active Substance: TIZANIDINE HYDROCHLORIDE
  14. MELOXICAM. [Concomitant]
     Active Substance: MELOXICAM
     Indication: ARTHRITIS
     Dosage: ONGOING : YES
     Route: 048
     Dates: start: 2002
  15. SOTALOL HCL [Concomitant]
     Active Substance: SOTALOL
  16. FLUOXETINE [Concomitant]
     Active Substance: FLUOXETINE HYDROCHLORIDE
     Indication: DEPRESSION
     Route: 048
     Dates: start: 1993
  17. OMEPRAZOLE. [Concomitant]
     Active Substance: OMEPRAZOLE
     Indication: GASTROOESOPHAGEAL REFLUX DISEASE
     Dosage: ONGOING : YES
     Route: 048
     Dates: start: 1993
  18. VENTOLIN HFA [Concomitant]
     Active Substance: ALBUTEROL SULFATE
  19. DOCUSATE SODIUM. [Concomitant]
     Active Substance: DOCUSATE SODIUM
  20. FLUOXETINE HCL [Concomitant]
     Active Substance: FLUOXETINE HYDROCHLORIDE
  21. LEVOTHYROXINE SODIUM. [Concomitant]
     Active Substance: LEVOTHYROXINE SODIUM
  22. FLUCONAZOLE. [Concomitant]
     Active Substance: FLUCONAZOLE
     Indication: FUNGAL INFECTION
     Dosage: AS REQUIRED; ONGOING : YES
     Route: 048
     Dates: start: 1997
  23. TIZANIDINE. [Concomitant]
     Active Substance: TIZANIDINE
     Dosage: AT NIGHT TIME ;ONGOING: YES
     Route: 048
     Dates: start: 1993
  24. OXYGEN. [Concomitant]
     Active Substance: OXYGEN
     Indication: CHRONIC OBSTRUCTIVE PULMONARY DISEASE
  25. ASPIRIN. [Concomitant]
     Active Substance: ASPIRIN

REACTIONS (15)
  - Large intestinal obstruction [Unknown]
  - Flatulence [Recovered/Resolved with Sequelae]
  - Fatigue [Not Recovered/Not Resolved]
  - Fibrosis [Not Recovered/Not Resolved]
  - Gastric ileus [Unknown]
  - Vomiting [Recovered/Resolved with Sequelae]
  - Malaise [Not Recovered/Not Resolved]
  - Gastric disorder [Recovered/Resolved with Sequelae]
  - Nausea [Recovered/Resolved with Sequelae]
  - Abdominal distension [Recovered/Resolved with Sequelae]
  - Emphysema [Not Recovered/Not Resolved]
  - Diarrhoea [Unknown]
  - Gastric disorder [Unknown]
  - Helicobacter test positive [Unknown]
  - Weight decreased [Unknown]

NARRATIVE: CASE EVENT DATE: 20170406
